FAERS Safety Report 18851732 (Version 1)
Quarter: 2021Q1

REPORT INFORMATION
  Report Type: Spontaneous
  Country: NL (occurrence: NL)
  Receive Date: 20210205
  Receipt Date: 20210205
  Transmission Date: 20210420
  Serious: Yes (Other)
  Sender: FDA-Public Use
  Company Number: NL-TEVA-2021-NL-1875755

PATIENT
  Age: 5 Decade
  Sex: Female
  Weight: 122 kg

DRUGS (3)
  1. THYRAX 25 MCG [Concomitant]
     Indication: HYPOTHYROIDISM
     Dosage: 100 1 X PER DAY
     Route: 048
     Dates: start: 20160824
  2. METFORMIN [Concomitant]
     Active Substance: METFORMIN HYDROCHLORIDE
     Indication: DIABETES MELLITUS
     Dosage: 1 DOSAGE FORMS DAILY;
     Route: 048
     Dates: start: 20190110
  3. CINQAERO [Suspect]
     Active Substance: RESLIZUMAB
     Indication: ASTHMA
     Dosage: 350 MG
     Route: 042
     Dates: start: 20180411

REACTIONS (2)
  - Abdominal pain [Unknown]
  - Cervix carcinoma [Unknown]

NARRATIVE: CASE EVENT DATE: 20201207
